FAERS Safety Report 9733092 (Version 1)
Quarter: 2013Q4

REPORT INFORMATION
  Report Type: Spontaneous
  Country: US (occurrence: None)
  Receive Date: 20131203
  Receipt Date: 20131203
  Transmission Date: 20140711
  Serious: Yes (Other)
  Sender: FDA-Public Use
  Company Number: LMI-2013-00487

PATIENT
  Age: 61 Year
  Sex: Male

DRUGS (3)
  1. DEFINITY (PERFLUTREN) [Suspect]
     Indication: ECHOCARDIOGRAM
     Dosage: 1 VIAL DEFINITY WITH 8.3 ML NORMAL SALINE (2 ML), INTRAVENOUS BOLUS
     Route: 040
     Dates: start: 20131121, end: 20131121
  2. HYDROCHLOROTHIAZIDE (HYDROCHLOROTHIAZIDE) [Concomitant]
  3. ACEON (PERINDOPRIL ERBUMINE) [Concomitant]

REACTIONS (4)
  - Blood pressure decreased [None]
  - Oxygen saturation decreased [None]
  - Flushing [None]
  - Rash [None]
